FAERS Safety Report 12040398 (Version 2)
Quarter: 2016Q1

REPORT INFORMATION
  Report Type: Report from Study
  Country: CO (occurrence: CO)
  Receive Date: 20160208
  Receipt Date: 20160212
  Transmission Date: 20160526
  Serious: Yes (Death, Hospitalization)
  Sender: FDA-Public Use
  Company Number: CO-JNJFOC-20160203124

PATIENT
  Age: 57 Year
  Sex: Male
  Weight: 70 kg

DRUGS (1)
  1. IMBRUVICA [Suspect]
     Active Substance: IBRUTINIB
     Indication: CHRONIC LYMPHOCYTIC LEUKAEMIA
     Route: 048
     Dates: start: 20160114, end: 20160129

REACTIONS (4)
  - Dysphagia [Fatal]
  - Mucosal inflammation [Fatal]
  - Cardio-respiratory arrest [Fatal]
  - Pyrexia [Fatal]

NARRATIVE: CASE EVENT DATE: 20160130
